FAERS Safety Report 6816368-2 (Version None)
Quarter: 2010Q3

REPORT INFORMATION
  Report Type: 
  Country: None (occurrence: None)
  Receive Date: 20100705
  Receipt Date: 20100628
  Transmission Date: 20110219
  Serious: Yes (Hospitalization)
  Sender: FDA-Public Use
  Company Number: PHHO2010CZ08886

PATIENT
  Sex: Female
  Weight: 81 kg

DRUGS (13)
  1. BLINDED ALISKIREN ALI+TAB+CF [Suspect]
     Dosage: CODE NOT BROKEN
     Route: 048
     Dates: start: 20100202
  2. BLINDED ENALAPRIL COMP-ENA+ [Suspect]
     Dosage: CODE NOT BROKEN
     Route: 048
     Dates: start: 20100202
  3. BLINDED NO TREATMENT RECEIVED NOMED [Suspect]
     Dosage: CODE NOT BROKEN
     Route: 048
     Dates: start: 20100202
  4. ALISKIREN [Suspect]
     Indication: CARDIAC FAILURE
     Dosage: UNK
     Dates: start: 20100104, end: 20100202
  5. COMPARATOR ENALAPRIL [Suspect]
     Indication: CARDIAC FAILURE
     Dosage: UNK
     Dates: start: 20091210, end: 20100103
  6. COMPARATOR ENALAPRIL [Suspect]
     Dosage: UNK
     Dates: start: 20100104, end: 20100202
  7. CORYOL [Concomitant]
  8. FURON [Concomitant]
  9. VASILIP [Concomitant]
  10. DIAPREL [Concomitant]
  11. GLYVENOL [Concomitant]
  12. ERSILAN [Concomitant]
  13. WARFARIN [Concomitant]

REACTIONS (3)
  - DYSPNOEA [None]
  - PULMONARY EMBOLISM [None]
  - THROMBOSIS [None]
